FAERS Safety Report 22004505 (Version 1)
Quarter: 2023Q1

REPORT INFORMATION
  Report Type: Spontaneous
  Country: US (occurrence: None)
  Receive Date: 20230215
  Receipt Date: 20230215
  Transmission Date: 20230418
  Serious: Yes (Other)
  Sender: FDA-Public Use
  Company Number: None

PATIENT
  Age: 54 Year
  Sex: Female

DRUGS (1)
  1. KESIMPTA [Suspect]
     Active Substance: OFATUMUMAB
     Indication: Multiple sclerosis
     Dosage: 0.4ML (20MG) Q 28 DAYS SUBCUTNEOUS
     Route: 058

REACTIONS (3)
  - Urticaria [None]
  - Feeling cold [None]
  - Post procedural complication [None]

NARRATIVE: CASE EVENT DATE: 20230213
